FAERS Safety Report 9938790 (Version 1)
Quarter: 2014Q1

REPORT INFORMATION
  Report Type: Spontaneous
  Country: US (occurrence: US)
  Receive Date: 20140303
  Receipt Date: 20140303
  Transmission Date: 20141002
  Serious: No
  Sender: FDA-Public Use
  Company Number: US-PFIZER INC-2014055843

PATIENT
  Age: 29 Year
  Sex: Female
  Weight: 61.2 kg

DRUGS (2)
  1. ADVIL COLD AND SINUS [Suspect]
     Indication: NASAL CONGESTION
     Dosage: ONE CAPSULE, TWO TIMES A DAY
     Route: 048
     Dates: start: 20140224
  2. ADVIL COLD AND SINUS [Suspect]
     Indication: SINUS HEADACHE

REACTIONS (2)
  - Drug ineffective [Unknown]
  - Pyrexia [Unknown]
